FAERS Safety Report 4567154-8 (Version None)
Quarter: 2005Q1

REPORT INFORMATION
  Report Type: 
  Country: None (occurrence: None)
  Receive Date: 20050201
  Receipt Date: 19980317
  Transmission Date: 20050727
  Serious: Yes (Death)
  Sender: FDA-Public Use
  Company Number: US-GLAXOSMITHKLINE-A0062412A

PATIENT
  Age: 28 Year
  Sex: Female
  Weight: 98.88 kg

DRUGS (1)
  1. LAMICTAL [Suspect]
     Dosage: 400MG PER DAY
     Route: 048
     Dates: start: 19970101

REACTIONS (3)
  - ARRHYTHMIA [None]
  - CHOKING [None]
  - SUDDEN DEATH [None]
